FAERS Safety Report 24221609 (Version 1)
Quarter: 2024Q3

REPORT INFORMATION
  Report Type: Spontaneous
  Country: AT (occurrence: AT)
  Receive Date: 20240819
  Receipt Date: 20240819
  Transmission Date: 20241017
  Serious: Yes (Other)
  Sender: BOEHRINGER INGELHEIM
  Company Number: AT-BoehringerIngelheim-2024-BI-045653

PATIENT
  Age: 81 Year
  Sex: Female

DRUGS (1)
  1. SPESOLIMAB [Suspect]
     Active Substance: SPESOLIMAB
     Indication: Generalised pustular psoriasis

REACTIONS (2)
  - Generalised pustular psoriasis [Not Recovered/Not Resolved]
  - Erythema [Not Recovered/Not Resolved]
